FAERS Safety Report 24416616 (Version 1)
Quarter: 2024Q4

REPORT INFORMATION
  Report Type: Report from Study
  Country: ZA (occurrence: ZA)
  Receive Date: 20241009
  Receipt Date: 20241009
  Transmission Date: 20250114
  Serious: Yes (Other)
  Sender: ABBVIE
  Company Number: ZA-ABBOTT-2024A-1389465

PATIENT
  Age: 47 Year
  Sex: Female

DRUGS (17)
  1. CREON [Suspect]
     Active Substance: PANCRELIPASE AMYLASE\PANCRELIPASE LIPASE\PANCRELIPASE PROTEASE
     Indication: Pancreatic failure
     Dosage: 300 MG ONE CAPSULE THREE TIMES A DAY? 25000
     Route: 048
  2. NUKAST [Concomitant]
     Indication: Product used for unknown indication
     Dosage: 30 MIU?AS DIRECTED
     Route: 058
  3. CAPECITABINE [Concomitant]
     Active Substance: CAPECITABINE
     Indication: Neoplasm malignant
     Dosage: 500 MG?TWO TABLETS TWICE A DAY
     Route: 048
  4. CAPECITABINE [Concomitant]
     Active Substance: CAPECITABINE
     Indication: Neoplasm malignant
     Dosage: 150 MG?TWO TABLETS TWICE A DAY
     Route: 048
  5. PREDNISONE [Concomitant]
     Active Substance: PREDNISONE
     Indication: Product used for unknown indication
     Dosage: 5 MG FOUR TABLETS IN THE MORNING
     Route: 048
  6. METOCLOPRAMIDE HYDROCHLORIDE [Concomitant]
     Active Substance: METOCLOPRAMIDE HYDROCHLORIDE
     Indication: Product used for unknown indication
     Dosage: 10 MG ONE TABLET EIGHT HOURLY
     Route: 048
  7. FENTANYL [Concomitant]
     Active Substance: FENTANYL
     Indication: Pain
     Dosage: 25 MCG?ONE PATCH EVERY 72 HOURS
     Route: 061
  8. DORMONOCT [Concomitant]
     Active Substance: LOPRAZOLAM
     Indication: Insomnia
     Dosage: 2 MG?ONE TABLET AT NIGHT
     Route: 048
  9. PREGABALIN [Concomitant]
     Active Substance: PREGABALIN
     Indication: Epilepsy
     Dosage: 25 MG?ONE CAPSULE TWICE A DAY
     Route: 048
  10. Allergex [Concomitant]
     Indication: Hypersensitivity
     Dosage: 4 MG AS DIRECTED
     Route: 048
  11. AMMONIUM CHLORIDE\DIPHENHYDRAMINE\ETOFYLLINE\SODIUM CITRATE\THEOPHYLLI [Concomitant]
     Active Substance: AMMONIUM CHLORIDE\DIPHENHYDRAMINE\ETOFYLLINE\SODIUM CITRATE\THEOPHYLLINE
     Indication: Product used for unknown indication
     Dosage: AS DIRECTED
     Route: 048
  12. LORAZEPAM [Concomitant]
     Active Substance: LORAZEPAM
     Indication: Anxiety
     Dosage: 2.5 MG ONE TABLET AT NIGHT
     Route: 048
  13. Adco Amethocaine [Concomitant]
     Indication: Product used for unknown indication
     Dosage: 1 G?APPLY TO AFFECTED AREA
     Route: 061
  14. ACETYLCYSTEINE [Concomitant]
     Active Substance: ACETYLCYSTEINE
     Indication: Product used for unknown indication
     Dosage: 200 MG?AS DIRECTED
     Route: 048
  15. OXYCODONE HYDROCHLORIDE [Concomitant]
     Active Substance: OXYCODONE HYDROCHLORIDE
     Indication: Surgery
     Dosage: 5 MG?ONE CAPSULE SIX HOURLY
     Route: 048
  16. OLANZAPINE [Concomitant]
     Active Substance: OLANZAPINE
     Indication: Mental disorder
     Dosage: 2.5 MG ONE TABLET AT NIGHT
     Route: 048
  17. PHENERGAN [Concomitant]
     Active Substance: PROMETHAZINE HYDROCHLORIDE
     Indication: Product used for unknown indication
     Dosage: 25 MG ONE TABLET AT NIGHT
     Route: 048

REACTIONS (2)
  - Neoplasm malignant [Unknown]
  - Malaise [Unknown]
